FAERS Safety Report 14586339 (Version 1)
Quarter: 2018Q1

REPORT INFORMATION
  Report Type: Spontaneous
  Country: US (occurrence: US)
  Receive Date: 20180301
  Receipt Date: 20180301
  Transmission Date: 20180509
  Serious: No
  Sender: FDA-Public Use
  Company Number: US-TEVA-798615ACC

PATIENT
  Sex: Female

DRUGS (1)
  1. NORTREL [Suspect]
     Active Substance: ETHINYL ESTRADIOL\NORETHINDRONE
     Indication: CONTRACEPTION
     Dosage: ETHINYLESTRADIOL/NORETHINDRONE :1 MG/0.035 MG
     Dates: start: 201705

REACTIONS (3)
  - Acne [Unknown]
  - Product substitution issue [Unknown]
  - Alopecia [Unknown]

NARRATIVE: CASE EVENT DATE: 201705
